FAERS Safety Report 13837578 (Version 1)
Quarter: 2017Q3

REPORT INFORMATION
  Report Type: Spontaneous
  Country: US (occurrence: US)
  Receive Date: 20170804
  Receipt Date: 20170804
  Transmission Date: 20171127
  Serious: Yes (Other)
  Sender: FDA-Public Use
  Company Number: US-ZYDUS-015906

PATIENT
  Age: 48 Year
  Sex: Female

DRUGS (10)
  1. OXYCODONE [Concomitant]
     Active Substance: OXYCODONE
     Indication: BACK PAIN
     Route: 065
  2. OLANZAPINE. [Interacting]
     Active Substance: OLANZAPINE
     Indication: PSYCHOTIC DISORDER
     Route: 065
  3. ATENOLOL. [Concomitant]
     Active Substance: ATENOLOL
     Indication: PRODUCT USED FOR UNKNOWN INDICATION
     Route: 065
  4. PREGABALIN. [Concomitant]
     Active Substance: PREGABALIN
     Indication: PRODUCT USED FOR UNKNOWN INDICATION
     Route: 065
  5. VALPROIC ACID. [Interacting]
     Active Substance: VALPROIC ACID
     Indication: MOOD SWINGS
     Route: 065
  6. ROPINIROLE/ROPINIROLE HYDROCHLORIDE [Concomitant]
     Indication: RESTLESS LEGS SYNDROME
     Route: 065
  7. PAROXETINE. [Concomitant]
     Active Substance: PAROXETINE
     Indication: PRODUCT USED FOR UNKNOWN INDICATION
     Route: 065
  8. OXYCODONE [Concomitant]
     Active Substance: OXYCODONE
     Indication: BACK PAIN
     Route: 065
  9. VALPROIC ACID. [Suspect]
     Active Substance: VALPROIC ACID
     Indication: MOOD SWINGS
     Route: 065
  10. DIAZEPAM. [Concomitant]
     Active Substance: DIAZEPAM
     Indication: PRODUCT USED FOR UNKNOWN INDICATION
     Route: 065

REACTIONS (10)
  - Depressed level of consciousness [Recovered/Resolved]
  - Ammonia increased [Recovered/Resolved]
  - Nausea [Recovered/Resolved]
  - Hyperammonaemic encephalopathy [Recovered/Resolved]
  - Dizziness [Recovered/Resolved]
  - Drug hypersensitivity [Unknown]
  - Vomiting [Recovered/Resolved]
  - Potentiating drug interaction [Recovered/Resolved]
  - Sedation [Recovered/Resolved]
  - Fatigue [Recovered/Resolved]
